FAERS Safety Report 7509925-1 (Version None)
Quarter: 2011Q2

REPORT INFORMATION
  Report Type: 
  Country: None (occurrence: None)
  Receive Date: 20110527
  Receipt Date: 20110524
  Transmission Date: 20111010
  Serious: Yes (Other)
  Sender: FDA-Public Use
  Company Number: BR-ABBOTT-10P-020-0686988-00

PATIENT
  Sex: Female
  Weight: 62 kg

DRUGS (24)
  1. DEFLAZACORT [Concomitant]
     Indication: RHEUMATOID ARTHRITIS
     Route: 048
  2. ENDOFOLIN [Concomitant]
     Indication: ANAEMIA
     Route: 048
  3. ALENDRONATE SODIUM CALCIUM CARBONATE COLECALCIFEROL [Concomitant]
     Indication: JOINT PROSTHESIS USER
     Dosage: ALENDIL
     Route: 048
  4. HUMIRA [Suspect]
     Indication: RHEUMATOID ARTHRITIS
     Route: 058
     Dates: start: 20090101
  5. DICLOFENAC SODIUM [Concomitant]
     Indication: PAIN
     Dosage: IF SHE PRESENTS PAIN
     Route: 048
  6. PANTOPRAZOLE [Concomitant]
     Indication: HIATUS HERNIA
     Route: 048
  7. CRESTOR [Concomitant]
     Indication: BLOOD CHOLESTEROL
     Route: 048
  8. ASPIRIN [Concomitant]
     Indication: ANTICOAGULANT THERAPY
  9. ARAVA [Concomitant]
     Indication: RHEUMATOID ARTHRITIS
     Route: 048
  10. CELEBREX [Concomitant]
     Indication: PAIN
     Route: 048
  11. METHOTREXATE [Concomitant]
     Indication: RHEUMATOID ARTHRITIS
     Route: 048
  12. PURAN T4 [Concomitant]
     Indication: HYPOTHYROIDISM
     Route: 048
  13. TRAMADOL HCL [Concomitant]
     Indication: PAIN
     Route: 048
  14. DICLOFENAC, CODEINE PHOSPHATE (CODATEN) [Concomitant]
     Indication: PAIN
     Route: 048
  15. AVANDIA [Concomitant]
     Indication: DIABETES MELLITUS
     Route: 048
     Dates: end: 20101001
  16. DIAMICRON MR [Concomitant]
     Indication: DIABETES MELLITUS
     Route: 048
  17. DIAMICRON [Concomitant]
     Indication: DIABETES MELLITUS
     Route: 048
  18. ACTOS [Concomitant]
     Indication: DIABETES MELLITUS
     Route: 048
  19. ACETAMINOPHEN AND CODEINE PHOSPHATE [Concomitant]
     Indication: PAIN
     Route: 048
  20. CLONAZEPAM [Concomitant]
     Indication: INSOMNIA
     Route: 048
  21. BESEROL [Concomitant]
     Indication: PAIN
     Dosage: DICLOFENAC SODIUM 50MG, CARISOPRODOL 125MG, PARACETAMOL 300MG, CAFFEINE 30MG
     Route: 048
  22. CRESTOR [Concomitant]
     Indication: BLOOD TRIGLYCERIDES
  23. OGRISA [Concomitant]
     Indication: DIABETES MELLITUS
     Route: 048
  24. LOSARTAN [Concomitant]
     Indication: HYPERTENSION

REACTIONS (5)
  - DEAFNESS BILATERAL [None]
  - HYPERTENSION [None]
  - SINUSITIS [None]
  - RHEUMATOID ARTHRITIS [None]
  - DEPRESSION [None]
